FAERS Safety Report 8157011-2 (Version None)
Quarter: 2012Q1

REPORT INFORMATION
  Report Type: 
  Country: None (occurrence: None)
  Receive Date: 20120222
  Receipt Date: 20120216
  Transmission Date: 20120608
  Serious: Yes (Hospitalization, Disabling)
  Sender: FDA-Public Use
  Company Number: US-MERCK-1112USA00463

PATIENT
  Age: 65 Year
  Sex: Female

DRUGS (4)
  1. ALENDRONATE SODIUM [Suspect]
     Indication: POSTMENOPAUSE
     Route: 048
     Dates: start: 20080201, end: 20080901
  2. FOSAMAX [Suspect]
     Route: 048
     Dates: start: 20080101, end: 20090201
  3. FOSAMAX [Suspect]
     Indication: POSTMENOPAUSE
     Route: 048
     Dates: start: 20030401, end: 20080201
  4. BONIVA [Suspect]
     Indication: POSTMENOPAUSE
     Route: 048
     Dates: start: 20090201, end: 20100301

REACTIONS (6)
  - FRACTURE NONUNION [None]
  - LOW TURNOVER OSTEOPATHY [None]
  - IMPAIRED HEALING [None]
  - FOOT FRACTURE [None]
  - FEMUR FRACTURE [None]
  - FOOT DEFORMITY [None]
